FAERS Safety Report 5295533-2 (Version None)
Quarter: 2007Q2

REPORT INFORMATION
  Report Type: 
  Country: None (occurrence: None)
  Receive Date: 20070405
  Receipt Date: 20070321
  Transmission Date: 20071010
  Serious: Yes (Hospitalization)
  Sender: FDA-Public Use
  Company Number: B0462417A

PATIENT
  Age: 28 Year
  Sex: Male

DRUGS (4)
  1. LITHIUM SALT(FORMULATION UNKNOWN)  (GENERIC) ( LITHIUM SALT) [Suspect]
     Indication: BIPOLAR DISORDER
  2. OLANZAPINE [Suspect]
     Indication: BIPOLAR DISORDER
  3. HALOPERIDOL [Suspect]
     Dosage: ORAL
     Route: 048
  4. HALOPERIDOL [Suspect]
     Indication: AGITATION
     Dosage: INTRAVENOUS
     Route: 042

REACTIONS (14)
  - AGITATION [None]
  - BEDRIDDEN [None]
  - BRAIN DAMAGE [None]
  - CATATONIA [None]
  - CEREBELLAR ATROPHY [None]
  - DEPRESSED LEVEL OF CONSCIOUSNESS [None]
  - DYSARTHRIA [None]
  - GAIT DISTURBANCE [None]
  - HYPOTONIA [None]
  - NEUROLEPTIC MALIGNANT SYNDROME [None]
  - NEUROTOXICITY [None]
  - PYREXIA [None]
  - RENAL FAILURE [None]
  - SPEECH DISORDER [None]
